FAERS Safety Report 9220269 (Version 1)
Quarter: 2013Q1

REPORT INFORMATION
  Report Type: Spontaneous
  Country: US (occurrence: None)
  Receive Date: 20120831
  Receipt Date: 20120831
  Transmission Date: 20140127
  Serious: No
  Sender: FDA-Public Use
  Company Number: 1000031527

PATIENT
  Age: 66 Year
  Sex: Female

DRUGS (5)
  1. DALIRESP (ROFLUMILAST) (500 MICROGRAM, TABLETS) [Suspect]
     Indication: CHRONIC OBSTRUCTIVE PULMONARY DISEASE
     Route: 048
     Dates: start: 20120502
  2. ADVAIR (FLUTICASONE) (FLUTICASONE) [Concomitant]
  3. SINGULAIR [Concomitant]
  4. SPIRIVA (TIOTROPIUM BROMIDE) (TIOTROPIUM BROMIDE) [Concomitant]
  5. XOPENEX (LEVALBUTEROL) (LEVALBUTEROL) [Concomitant]

REACTIONS (3)
  - Back pain [None]
  - Decreased appetite [None]
  - Weight decreased [None]
